FAERS Safety Report 9934119 (Version 1)
Quarter: 2014Q1

REPORT INFORMATION
  Report Type: Spontaneous
  Country: US (occurrence: US)
  Receive Date: 20140228
  Receipt Date: 20140228
  Transmission Date: 20141002
  Serious: No
  Sender: FDA-Public Use
  Company Number: US-ABBVIE-13P-163-1075670-00

PATIENT
  Sex: Male
  Weight: 81.72 kg

DRUGS (4)
  1. ANDROGEL [Suspect]
     Indication: BLOOD TESTOSTERONE DECREASED
     Route: 061
  2. LOSARTAN [Concomitant]
     Indication: HYPERTENSION
  3. ALLEGRA [Concomitant]
     Indication: HYPERSENSITIVITY
  4. VITAMINS NOS [Concomitant]
     Indication: PRODUCT USED FOR UNKNOWN INDICATION

REACTIONS (2)
  - Blood testosterone decreased [Not Recovered/Not Resolved]
  - Product quality issue [Unknown]
